FAERS Safety Report 7767325-3 (Version None)
Quarter: 2011Q3

REPORT INFORMATION
  Report Type: 
  Country: None (occurrence: None)
  Receive Date: 20110922
  Receipt Date: 20110328
  Transmission Date: 20111222
  Serious: No
  Sender: FDA-Public Use
  Company Number: US-ASTRAZENECA-2011SE17462

PATIENT
  Age: 42 Year
  Sex: Male
  Weight: 82.6 kg

DRUGS (3)
  1. CHOLESTEROL  MEDICATION [Concomitant]
     Indication: BLOOD CHOLESTEROL INCREASED
  2. SEROQUEL [Suspect]
     Indication: DEPRESSION
     Route: 048
     Dates: start: 20040101, end: 20110321
  3. HTN MEDICATIONS [Concomitant]
     Indication: HYPERTENSION

REACTIONS (2)
  - INSOMNIA [None]
  - DRUG DOSE OMISSION [None]
